FAERS Safety Report 8494179-2 (Version None)
Quarter: 2012Q3

REPORT INFORMATION
  Report Type: 
  Country: None (occurrence: None)
  Receive Date: 20120709
  Receipt Date: 20120705
  Transmission Date: 20120928
  Serious: Yes (Death, Hospitalization)
  Sender: FDA-Public Use
  Company Number: PHFR2012GB003438

PATIENT
  Sex: Male
  Weight: 70.7 kg

DRUGS (22)
  1. CLOZARIL [Suspect]
     Indication: SCHIZOPHRENIA
     Dates: start: 20120420
  2. CLOZARIL [Suspect]
     Dosage: 150 MG, UNK
     Dates: start: 20120530
  3. ASPIRIN [Concomitant]
     Indication: GENERAL PHYSICAL CONDITION ABNORMAL
     Dosage: 75 MG, UNK
     Route: 048
     Dates: start: 20110728
  4. EUMOVATE [Concomitant]
     Indication: DERMATITIS
     Route: 061
  5. OMEPRAZOLE [Concomitant]
     Indication: GENERAL PHYSICAL CONDITION ABNORMAL
     Dosage: 40 MG, UNK
     Route: 048
     Dates: start: 20110728
  6. LOPERAMIDE [Concomitant]
     Indication: DIARRHOEA
     Dosage: 2 MG,(MAX 16MG)
     Route: 048
  7. OLANZAPINE [Concomitant]
     Indication: SCHIZOAFFECTIVE DISORDER
     Dosage: 10 MG, UNK
     Route: 048
     Dates: start: 20120509
  8. LACTULOSE [Concomitant]
     Indication: GENERAL PHYSICAL CONDITION ABNORMAL
     Dosage: 15 MG, UNK
     Route: 048
     Dates: start: 20110728
  9. COLECALCIFEROL [Concomitant]
     Indication: GENERAL PHYSICAL CONDITION ABNORMAL
     Dosage: 2000 U, UNK
     Route: 048
     Dates: start: 20120501
  10. ACETAMINOPHEN [Concomitant]
     Indication: PAIN
     Dosage: 1 G, UNK
     Route: 048
  11. CLOZARIL [Suspect]
     Dosage: 175 MG, UNK
     Dates: start: 20120518, end: 20120528
  12. VALPROATE SODIUM [Concomitant]
     Indication: SCHIZOAFFECTIVE DISORDER
     Dosage: 12.50 MG, UNK
     Route: 048
  13. AMLODIPINE [Concomitant]
     Indication: GENERAL PHYSICAL CONDITION ABNORMAL
     Dosage: 5 MG, UNK
     Route: 048
     Dates: start: 20110728
  14. PEPTAC [Concomitant]
     Dosage: 40 ML, QD
  15. ENSURE PLUS [Concomitant]
     Dosage: 220 ML, QD
     Route: 048
  16. LORAZEPAM [Concomitant]
     Indication: SCHIZOAFFECTIVE DISORDER
     Dosage: 1.5 MG, UNK
     Route: 048
     Dates: start: 20120521
  17. EYS CREAM [Concomitant]
     Indication: DRY SKIN
     Dosage: (TX4)
     Route: 061
     Dates: start: 20110728
  18. HYOSCINE HYDROBROMIDE [Concomitant]
     Indication: SALIVARY HYPERSECRETION
     Dosage: (X3/WEEK)
  19. PEPTAC [Concomitant]
     Indication: DYSPEPSIA
     Dosage: 10 ML, QD
     Route: 048
  20. SENNA-MINT WAF [Concomitant]
     Indication: GENERAL PHYSICAL CONDITION ABNORMAL
     Dosage: 15 MG, UNK
     Route: 048
     Dates: start: 20110912
  21. LISINOPRIL [Concomitant]
     Indication: GENERAL PHYSICAL CONDITION ABNORMAL
     Dosage: 2.5 MG, UNK
     Route: 048
     Dates: start: 20120430
  22. LAXIDO [Concomitant]
     Dosage: (1-3 SACHETS)

REACTIONS (3)
  - COLITIS [None]
  - RENAL FAILURE ACUTE [None]
  - SEDATION [None]
